FAERS Safety Report 6148273-1 (Version None)
Quarter: 2009Q2

REPORT INFORMATION
  Report Type: 
  Country: None (occurrence: None)
  Receive Date: 20090408
  Receipt Date: 20090331
  Transmission Date: 20091009
  Serious: Yes (Hospitalization)
  Sender: FDA-Public Use
  Company Number: US-ELI_LILLY_AND_COMPANY-US200904000721

PATIENT
  Sex: Male

DRUGS (8)
  1. HUMALOG [Suspect]
     Indication: BLOOD GLUCOSE INCREASED
     Dosage: 10 U, DAILY (1/D)
  2. LANTUS [Concomitant]
     Dosage: 12 U, UNK
  3. INSULIN [Concomitant]
  4. VITAMINS [Concomitant]
  5. POTASSIUM CHLORIDE [Concomitant]
     Indication: MUSCLE SPASMS
  6. ZYRTEC [Concomitant]
     Indication: HYPERSENSITIVITY
  7. MECLIZINE [Concomitant]
     Indication: VERTIGO
  8. CELEBREX [Concomitant]
     Indication: ARTHRITIS

REACTIONS (12)
  - BACK PAIN [None]
  - BLOOD GLUCOSE DECREASED [None]
  - BLOOD GLUCOSE INCREASED [None]
  - COUGH [None]
  - EAR INFECTION [None]
  - GASTRIC BYPASS [None]
  - INFLUENZA [None]
  - NASOPHARYNGITIS [None]
  - NIGHT SWEATS [None]
  - SURGERY [None]
  - VISUAL ACUITY REDUCED [None]
  - WEIGHT DECREASED [None]
